FAERS Safety Report 4446316-4 (Version None)
Quarter: 2004Q3

REPORT INFORMATION
  Report Type: 
  Country: None (occurrence: None)
  Receive Date: 20040902
  Receipt Date: 20040817
  Transmission Date: 20050211
  Serious: Yes (Life-Threatening)
  Sender: FDA-Public Use
  Company Number: B0343192A

PATIENT
  Age: 57 Year
  Sex: Female

DRUGS (2)
  1. ALKERAN [Suspect]
     Dosage: 225 MG/M2
  2. GRANULOCYTE COL.STIM, FACT [Concomitant]

REACTIONS (6)
  - DYSPNOEA [None]
  - FEBRILE NEUTROPENIA [None]
  - HERPES SIMPLEX [None]
  - PNEUMONITIS [None]
  - POST PROCEDURAL COMPLICATION [None]
  - STEM CELL TRANSPLANT [None]
